FAERS Safety Report 8169534-0 (Version None)
Quarter: 2012Q1

REPORT INFORMATION
  Report Type: 
  Country: None (occurrence: None)
  Receive Date: 20120228
  Receipt Date: 20120217
  Transmission Date: 20120608
  Serious: Yes (Hospitalization)
  Sender: FDA-Public Use
  Company Number: FR-SP-2012-02326

PATIENT
  Sex: Male

DRUGS (1)
  1. IMMUCYST [Suspect]
     Indication: BLADDER CANCER
     Route: 043
     Dates: start: 20090101, end: 20100401

REACTIONS (3)
  - CYSTITIS NONINFECTIVE [None]
  - INFLAMMATION [None]
  - TUBERCULOSIS BLADDER [None]
